FAERS Safety Report 12778508 (Version 4)
Quarter: 2016Q4

REPORT INFORMATION
  Report Type: Spontaneous
  Country: GB (occurrence: GB)
  Receive Date: 20160926
  Receipt Date: 20161004
  Transmission Date: 20170207
  Serious: Yes (Life-Threatening, Hospitalization)
  Sender: FDA-Public Use
  Company Number: GB-CIPLA LTD.-2016GB18373

PATIENT

DRUGS (12)
  1. ASPIRIN. [Suspect]
     Active Substance: ASPIRIN
     Indication: ACUTE MYOCARDIAL INFARCTION
     Dosage: 75 MG, QD, IN THE MORNING
     Route: 048
     Dates: end: 20160504
  2. GAVISCON ADVANCE [Concomitant]
     Active Substance: POTASSIUM BICARBONATE\SODIUM ALGINATE
     Dosage: UNK
     Route: 065
  3. LEVOTHYROXINE. [Concomitant]
     Active Substance: LEVOTHYROXINE
     Dosage: UNK
     Route: 065
  4. AMITRIPTYLINE [Concomitant]
     Active Substance: AMITRIPTYLINE
     Dosage: UNK
     Route: 065
  5. CO-PROXAMOL [Concomitant]
     Active Substance: ACETAMINOPHEN\PROPOXYPHENE HYDROCHLORIDE
     Dosage: UNK
     Route: 065
  6. ALVERINE CITRATE [Concomitant]
     Active Substance: ALVERINE CITRATE
     Dosage: UNK
     Route: 065
  7. AMLODIPINE [Concomitant]
     Active Substance: AMLODIPINE BESYLATE
     Dosage: UNK
     Route: 065
  8. ZOLPIDEM [Concomitant]
     Active Substance: ZOLPIDEM\ZOLPIDEM TARTRATE
     Dosage: UNK
     Route: 065
  9. CITALOPRAM [Suspect]
     Active Substance: CITALOPRAM HYDROBROMIDE
     Indication: DEPRESSION
     Dosage: 20 MG, QD
     Route: 048
     Dates: end: 20160504
  10. CAPTOPRIL. [Concomitant]
     Active Substance: CAPTOPRIL
     Dosage: UNK
     Route: 065
  11. COCODAMOL [Concomitant]
     Active Substance: ACETAMINOPHEN\CODEINE PHOSPHATE
     Dosage: UNK
     Route: 065
  12. PRAVASTATIN. [Concomitant]
     Active Substance: PRAVASTATIN
     Dosage: UNK
     Route: 065

REACTIONS (4)
  - Gastrointestinal haemorrhage [Recovered/Resolved]
  - Abdominal pain [Unknown]
  - Faeces discoloured [Unknown]
  - Duodenal ulcer [Unknown]

NARRATIVE: CASE EVENT DATE: 20160405
